FAERS Safety Report 8178044-6 (Version None)
Quarter: 2012Q1

REPORT INFORMATION
  Report Type: 
  Country: None (occurrence: None)
  Receive Date: 20120126
  Receipt Date: 20111011
  Transmission Date: 20120608
  Serious: No
  Sender: FDA-Public Use
  Company Number: PHEH2011US07397

PATIENT
  Age: 12 Year
  Sex: Female

DRUGS (4)
  1. AFINITOR [Suspect]
     Indication: TUBEROUS SCLEROSIS
     Dosage: 7.5 MG, DAILY, ORAL
     Route: 048
     Dates: start: 20091209
  2. CLARITIN [Concomitant]
  3. VIMPAT [Concomitant]
  4. STRATTERA [Concomitant]

REACTIONS (1)
  - OBSESSIVE-COMPULSIVE DISORDER [None]
